FAERS Safety Report 9010704 (Version 1)
Quarter: 2013Q1

REPORT INFORMATION
  Report Type: Spontaneous
  Country: US (occurrence: US)
  Receive Date: 20130109
  Receipt Date: 20130109
  Transmission Date: 20140127
  Serious: Yes (Hospitalization)
  Sender: FDA-Public Use
  Company Number: US-009507513-1301USA001554

PATIENT
  Age: 77 Year
  Sex: Female

DRUGS (2)
  1. MONTELUKAST SODIUM [Suspect]
     Route: 048
  2. ZYVOX [Suspect]
     Route: 048

REACTIONS (4)
  - Thrombosis [Unknown]
  - Thrombocytopenia [Unknown]
  - Asthenia [Unknown]
  - Anaemia [Unknown]
